FAERS Safety Report 25903819 (Version 2)
Quarter: 2025Q4

REPORT INFORMATION
  Report Type: Spontaneous
  Country: EU (occurrence: EU)
  Receive Date: 20251010
  Receipt Date: 20251110
  Transmission Date: 20260118
  Serious: Yes (Hospitalization)
  Sender: TEVA
  Company Number: None

PATIENT
  Age: 89 Year
  Sex: Male
  Weight: 62 kg

DRUGS (2)
  1. POMALIDOMIDE [Suspect]
     Active Substance: POMALIDOMIDE
     Indication: Plasma cell myeloma
     Dosage: POMALIDOMIDE (8377A)
     Route: 048
     Dates: start: 20250728, end: 20250813
  2. DEXAMETHASONE [Suspect]
     Active Substance: DEXAMETHASONE
     Indication: Plasma cell myeloma
     Dosage: 8MG EVERY 1 WEEK: DEXAMETHASONE (722A)
     Route: 048
     Dates: start: 20250728, end: 20250813

REACTIONS (2)
  - Mastoiditis [Recovered/Resolved]
  - Sinusitis [Recovered/Resolved]

NARRATIVE: CASE EVENT DATE: 20250812
